FAERS Safety Report 9060920 (Version 1)
Quarter: 2013Q1

REPORT INFORMATION
  Report Type: Report from Study
  Country: FR (occurrence: FR)
  Receive Date: 20130212
  Receipt Date: 20130212
  Transmission Date: 20140127
  Serious: Yes (Other)
  Sender: FDA-Public Use
  Company Number: PHHY2011FR117828

PATIENT
  Sex: 0

DRUGS (1)
  1. GLIVEC [Suspect]
     Dosage: 400 MG, QD

REACTIONS (5)
  - Fibromatosis [Unknown]
  - Erythropoiesis abnormal [Unknown]
  - Anaemia [Unknown]
  - Pancytopenia [Unknown]
  - Urine calcium decreased [Unknown]
